FAERS Safety Report 10100400 (Version 1)
Quarter: 2014Q2

REPORT INFORMATION
  Report Type: Spontaneous
  Country: US (occurrence: US)
  Receive Date: 20140423
  Receipt Date: 20140423
  Transmission Date: 20141212
  Serious: Yes (Other)
  Sender: FDA-Public Use
  Company Number: US-INCYTE CORPORATION-2014IN001054

PATIENT
  Sex: Female

DRUGS (2)
  1. JAKAFI [Suspect]
     Indication: MYELOFIBROSIS
     Dosage: 10 MG, QD
     Route: 048
     Dates: start: 20140228
  2. HYDREA [Concomitant]
     Indication: WHITE BLOOD CELL COUNT INCREASED

REACTIONS (4)
  - White blood cell count increased [Unknown]
  - Tenderness [Unknown]
  - Melanocytic naevus [Unknown]
  - Transfusion [Unknown]
